FAERS Safety Report 14829297 (Version 1)
Quarter: 2018Q2

REPORT INFORMATION
  Report Type: Spontaneous
  Country: US (occurrence: US)
  Receive Date: 20180407
  Receipt Date: 20180407
  Transmission Date: 20180711
  Serious: Yes (Disabling)
  Sender: FDA-Public Use
  Company Number: None

PATIENT
  Age: 64 Year
  Sex: Male
  Weight: 105.75 kg

DRUGS (6)
  1. PROVANTAGE [Concomitant]
  2. RELIV NUTRITIONAL SUPPLEMENTS (RELIV CLASSIC) [Concomitant]
  3. REPATHA [Suspect]
     Active Substance: EVOLOCUMAB
     Indication: TYPE IIA HYPERLIPIDAEMIA
     Route: 030
     Dates: start: 20171018
  4. FIBRESTORE [Concomitant]
  5. INNERGIZE [Concomitant]
  6. ARTHAFFECT [Concomitant]

REACTIONS (2)
  - Colitis microscopic [None]
  - Diarrhoea [None]

NARRATIVE: CASE EVENT DATE: 20170624
